FAERS Safety Report 12158475 (Version 4)
Quarter: 2016Q4

REPORT INFORMATION
  Report Type: Spontaneous
  Country: US (occurrence: US)
  Receive Date: 20160308
  Receipt Date: 20161017
  Transmission Date: 20170207
  Serious: No
  Sender: FDA-Public Use
  Company Number: US-JNJFOC-20150616196

PATIENT
  Sex: Male

DRUGS (3)
  1. ATENOLOL. [Concomitant]
     Active Substance: ATENOLOL
  2. IMBRUVICA [Suspect]
     Active Substance: IBRUTINIB
     Indication: CHRONIC LYMPHOCYTIC LEUKAEMIA
     Route: 048
  3. IMBRUVICA [Suspect]
     Active Substance: IBRUTINIB
     Indication: CHRONIC LYMPHOCYTIC LEUKAEMIA
     Route: 048
     Dates: start: 20150129

REACTIONS (5)
  - Onychoclasis [Unknown]
  - Pruritus [Unknown]
  - White blood cell count increased [Recovering/Resolving]
  - Blood urine present [Unknown]
  - Increased tendency to bruise [Recovering/Resolving]

NARRATIVE: CASE EVENT DATE: 2015
